FAERS Safety Report 6061926-9 (Version None)
Quarter: 2009Q1

REPORT INFORMATION
  Report Type: 
  Country: None (occurrence: None)
  Receive Date: 20090202
  Receipt Date: 20090128
  Transmission Date: 20090719
  Serious: Yes (Hospitalization)
  Sender: FDA-Public Use
  Company Number: PHHY2009BE03221

PATIENT
  Age: 70 Year
  Sex: Male

DRUGS (16)
  1. RASILEZ [Suspect]
     Indication: HYPERTENSION
     Dosage: 150 MG, UNK
     Route: 048
     Dates: start: 20080602
  2. RASILEZ [Suspect]
     Dosage: 300 MG, UNK
     Route: 048
     Dates: start: 20080619
  3. EXFORGE [Concomitant]
     Indication: HYPERTENSION
     Dosage: 10/160 MG
  4. TERAZOSIN HCL [Concomitant]
     Indication: HYPERTENSION
  5. SELOZOK [Concomitant]
     Indication: HYPERTENSION
     Dosage: 200 MG, UNK
  6. SELOZOK [Concomitant]
     Dosage: 100 MG
  7. PLAVIX [Concomitant]
  8. ASPIRIN [Concomitant]
  9. CORDARONE [Concomitant]
  10. EPOGEN [Concomitant]
  11. SERTRALINE [Concomitant]
  12. LYSOMUCIL [Concomitant]
  13. RENAGEL [Concomitant]
  14. CALCIUM [Concomitant]
  15. DAFALGAN [Concomitant]
  16. ALPHA ^LEO^ [Concomitant]

REACTIONS (5)
  - CEREBRAL ARTERY STENOSIS [None]
  - CEREBROVASCULAR ACCIDENT [None]
  - HAEMORRHAGE [None]
  - HEMIPARESIS [None]
  - HEMIPLEGIA [None]
